FAERS Safety Report 18967721 (Version 1)
Quarter: 2021Q1

REPORT INFORMATION
  Report Type: Report from Study
  Country: GB (occurrence: JP)
  Receive Date: 20210304
  Receipt Date: 20210304
  Transmission Date: 20210420
  Serious: Yes (Other)
  Sender: FDA-Public Use
  Company Number: JP-ASTELLAS-2021US007209

PATIENT
  Age: 74 Year
  Sex: Female

DRUGS (1)
  1. ERLOTINIB [Suspect]
     Active Substance: ERLOTINIB
     Indication: NON-SMALL CELL LUNG CANCER
     Dosage: UNK UNK, UNKNOWN FREQ.
     Route: 048
     Dates: start: 20160323, end: 20180131

REACTIONS (4)
  - Dermatitis acneiform [Recovering/Resolving]
  - Urinary tract infection [Recovered/Resolved with Sequelae]
  - Proteinuria [Recovering/Resolving]
  - Dental caries [Recovered/Resolved]

NARRATIVE: CASE EVENT DATE: 20160331
